FAERS Safety Report 5112473-X (Version None)
Quarter: 2006Q3

REPORT INFORMATION
  Report Type: 
  Country: None (occurrence: None)
  Receive Date: 20060922
  Receipt Date: 20051028
  Transmission Date: 20061208
  Serious: Yes (Death)
  Sender: FDA-Public Use
  Company Number: US-BRISTOL-MYERS SQUIBB COMPANY-13161971

PATIENT
  Age: 73 Year
  Sex: Female

DRUGS (13)
  1. MEGACE [Suspect]
     Indication: INCREASED APPETITE
     Route: 048
     Dates: start: 20050509, end: 20051001
  2. LASIX [Concomitant]
  3. EVISTA [Concomitant]
  4. ALPRAZOLAM [Concomitant]
  5. ATENOLOL [Concomitant]
  6. ACIPHEX [Concomitant]
  7. COMPAZINE [Concomitant]
  8. LEXAPRO [Concomitant]
  9. BENADRYL [Concomitant]
  10. FERROUS SULFATE TAB [Concomitant]
  11. PROTONIX [Concomitant]
  12. ATIVAN [Concomitant]
  13. DURAGESIC-100 [Concomitant]

REACTIONS (1)
  - MALIGNANT NEOPLASM PROGRESSION [None]
